FAERS Safety Report 6703087-6 (Version None)
Quarter: 2010Q2

REPORT INFORMATION
  Report Type: 
  Country: None (occurrence: None)
  Receive Date: 20100428
  Receipt Date: 20100423
  Transmission Date: 20101027
  Serious: Yes (Life-Threatening, Hospitalization)
  Sender: FDA-Public Use
  Company Number: 2010US001246

PATIENT
  Age: 25 Year
  Sex: Female

DRUGS (7)
  1. AMBISOME [Suspect]
     Indication: SEPSIS
     Dosage: 200 MG, UID/QD, IV DRIP
     Route: 041
     Dates: start: 20100331, end: 20100404
  2. DAUNORUBICIN HCL [Concomitant]
  3. CYTARABINE [Concomitant]
  4. MAXIPIME [Concomitant]
  5. PENICILLIN G POTASSIUM [Concomitant]
  6. VANCOMYCIN [Concomitant]
  7. CLINDAMYCIN HCL [Concomitant]

REACTIONS (4)
  - CLONIC CONVULSION [None]
  - PYREXIA [None]
  - RESPIRATORY DISTRESS [None]
  - RHABDOMYOLYSIS [None]
